FAERS Safety Report 5724950-9 (Version None)
Quarter: 2008Q2

REPORT INFORMATION
  Report Type: 
  Country: None (occurrence: None)
  Receive Date: 20080501
  Receipt Date: 20080422
  Transmission Date: 20081010
  Serious: Yes (Death, Hospitalization)
  Sender: FDA-Public Use
  Company Number: US-GENENTECH-259294

PATIENT
  Sex: Female
  Weight: 58.5 kg

DRUGS (13)
  1. BEVACIZUMAB [Suspect]
     Indication: COLON CANCER
     Dosage: 300 MG, Q2W
     Route: 042
     Dates: start: 20080312
  2. FLUOROURACIL [Suspect]
     Indication: COLON CANCER
     Dosage: 660 MG, Q2W
     Route: 042
     Dates: start: 20080312
  3. FLUOROURACIL [Suspect]
     Dosage: 3960 MG, Q2W
     Route: 042
     Dates: start: 20080312
  4. OXALIPLATIN [Suspect]
     Indication: COLON CANCER
     Dosage: 140 MG, Q2W
     Route: 042
     Dates: start: 20080312
  5. LEUCOVORIN CALCIUM [Suspect]
     Indication: COLON CANCER
     Dosage: 660 MG, Q2W
     Route: 042
     Dates: start: 20080312
  6. CIPROFLOXACIN [Concomitant]
     Indication: DRUG USE FOR UNKNOWN INDICATION
     Dosage: UNK, UNK
     Dates: start: 20080307, end: 20080319
  7. TENORMIN [Concomitant]
     Indication: DRUG USE FOR UNKNOWN INDICATION
     Route: 048
     Dates: start: 20070820
  8. CLONIDINE HCL [Concomitant]
     Indication: DRUG USE FOR UNKNOWN INDICATION
     Route: 048
     Dates: start: 20080324, end: 20080326
  9. HYZAAR [Concomitant]
     Indication: DRUG USE FOR UNKNOWN INDICATION
     Route: 048
     Dates: start: 20070820, end: 20080319
  10. DIFLUCAN [Concomitant]
     Indication: DRUG USE FOR UNKNOWN INDICATION
     Route: 048
     Dates: start: 20080317
  11. STOMATITIS COCKTAIL (INGREDIENTS UNKNOWN) [Concomitant]
     Indication: DRUG USE FOR UNKNOWN INDICATION
     Route: 048
     Dates: start: 20080317
  12. DURAGESIC-100 [Concomitant]
     Indication: DRUG USE FOR UNKNOWN INDICATION
     Dates: start: 20080324
  13. LEVAQUIN [Concomitant]
     Indication: DRUG USE FOR UNKNOWN INDICATION
     Dates: start: 20080324, end: 20080326

REACTIONS (3)
  - NEUTROPENIA [None]
  - RESPIRATORY FAILURE [None]
  - SEPSIS [None]
